FAERS Safety Report 23566041 (Version 2)
Quarter: 2024Q1

REPORT INFORMATION
  Report Type: Spontaneous
  Country: US (occurrence: US)
  Receive Date: 20240226
  Receipt Date: 20240311
  Transmission Date: 20240410
  Serious: No
  Sender: FDA-Public Use
  Company Number: US-BAYER-2024A028793

PATIENT
  Age: 32 Year
  Sex: Female

DRUGS (1)
  1. MIRENA [Suspect]
     Active Substance: LEVONORGESTREL
     Indication: Intrauterine contraception
     Dosage: 20?G/DAY
     Route: 015
     Dates: start: 202401

REACTIONS (3)
  - Dysuria [Recovered/Resolved]
  - Hypoaesthesia [Recovered/Resolved]
  - Genital hypoaesthesia [Recovered/Resolved]

NARRATIVE: CASE EVENT DATE: 20240101
